FAERS Safety Report 10754362 (Version 2)
Quarter: 2015Q1

REPORT INFORMATION
  Report Type: Spontaneous
  Country: JP (occurrence: JP)
  Receive Date: 20150202
  Receipt Date: 20150224
  Transmission Date: 20150721
  Serious: Yes (Death, Life-Threatening)
  Sender: FDA-Public Use
  Company Number: JP-CUBIST PHARMACEUTICALS, INC.-2015CBST000121

PATIENT

DRUGS (6)
  1. CUBICIN [Suspect]
     Active Substance: DAPTOMYCIN
     Indication: STAPHYLOCOCCAL SEPSIS
     Dosage: 6.09 MG/KG, ONCE A DAY
     Route: 041
     Dates: start: 20141222, end: 20150107
  2. MEROPEN                            /01250501/ [Concomitant]
     Active Substance: MEROPENEM
     Indication: STAPHYLOCOCCAL SEPSIS
     Dosage: 1 G, DAILY
     Route: 041
     Dates: start: 20141222, end: 20150107
  3. UNKNOWN DRUG [Concomitant]
     Active Substance: UNSPECIFIED INGREDIENT
     Indication: PRODUCT USED FOR UNKNOWN INDICATION
     Dosage: UNK UNK, UNK
     Route: 041
  4. CUBICIN [Suspect]
     Active Substance: DAPTOMYCIN
     Indication: OFF LABEL USE
     Dosage: 250 MG, ONCE A DAY
     Route: 041
     Dates: start: 20141222, end: 20150107
  5. SPIRONOLACTONE. [Concomitant]
     Active Substance: SPIRONOLACTONE
     Indication: PRODUCT USED FOR UNKNOWN INDICATION
     Dosage: UNK UNK, UNK
     Route: 048
  6. DIART [Concomitant]
     Active Substance: AZOSEMIDE
     Indication: PRODUCT USED FOR UNKNOWN INDICATION
     Dosage: 60 MG, UNK
     Route: 048

REACTIONS (2)
  - Interstitial lung disease [Fatal]
  - Off label use [Fatal]

NARRATIVE: CASE EVENT DATE: 20150106
